FAERS Safety Report 13957840 (Version 1)
Quarter: 2017Q3

REPORT INFORMATION
  Report Type: Spontaneous
  Country: US (occurrence: None)
  Receive Date: 20170911
  Receipt Date: 20170911
  Transmission Date: 20171128
  Serious: Yes (Other)
  Sender: FDA-Public Use
  Company Number: 2017US000045

PATIENT
  Sex: Female

DRUGS (1)
  1. TYMLOS [Suspect]
     Active Substance: ABALOPARATIDE
     Indication: OSTEOPOROSIS POSTMENOPAUSAL
     Route: 058
     Dates: start: 20170810

REACTIONS (4)
  - Wrong technique in device usage process [None]
  - Diarrhoea [None]
  - Injection site bruising [None]
  - Vomiting [None]

NARRATIVE: CASE EVENT DATE: 20170812
